FAERS Safety Report 16677751 (Version 2)
Quarter: 2019Q3

REPORT INFORMATION
  Report Type: Spontaneous
  Country: US (occurrence: US)
  Receive Date: 20190807
  Receipt Date: 20190910
  Transmission Date: 20191004
  Serious: Yes (Hospitalization, Other)
  Sender: FDA-Public Use
  Company Number: US-ELI_LILLY_AND_COMPANY-US201907014445

PATIENT
  Sex: Male

DRUGS (4)
  1. CYMBALTA [Suspect]
     Active Substance: DULOXETINE HYDROCHLORIDE
     Indication: BACK PAIN
     Dosage: 30 MG, DAILY
     Route: 048
     Dates: start: 20190607, end: 201907
  2. AMLODIPINE [Concomitant]
     Active Substance: AMLODIPINE BESYLATE
     Indication: HYPERTENSION
  3. CYMBALTA [Suspect]
     Active Substance: DULOXETINE HYDROCHLORIDE
     Dosage: 60 MG, DAILY
     Route: 048
     Dates: start: 201907, end: 20190725
  4. LISINOPRIL. [Concomitant]
     Active Substance: LISINOPRIL
     Indication: HYPERTENSION

REACTIONS (17)
  - Suicide attempt [Unknown]
  - Fall [Unknown]
  - Abdominal pain [Unknown]
  - Orthostatic hypotension [Unknown]
  - Weight decreased [Unknown]
  - Off label use [Unknown]
  - Blood creatinine decreased [Unknown]
  - Blood creatinine increased [Unknown]
  - Dehydration [Recovered/Resolved]
  - Nephrolithiasis [Unknown]
  - Calculus urinary [Unknown]
  - Anaemia vitamin B12 deficiency [Unknown]
  - Chest pain [Unknown]
  - Acute kidney injury [Unknown]
  - Presyncope [Unknown]
  - Tremor [Unknown]
  - Iron deficiency anaemia [Unknown]

NARRATIVE: CASE EVENT DATE: 201907
